FAERS Safety Report 8208343 (Version 3)
Quarter: 2012Q4

REPORT INFORMATION
  Report Type: Report from Study
  Country: CA (occurrence: CA)
  Receive Date: 20111028
  Receipt Date: 20121218
  Transmission Date: 20130627
  Serious: Yes (Other)
  Sender: FDA-Public Use
  Company Number: CA-ABBOTT-11P-028-0867938-00

PATIENT
  Sex: Male
  Weight: 59.93 kg

DRUGS (18)
  1. LUPRON DEPOT 22.5 MG [Suspect]
     Indication: PROSTATE CANCER
     Dates: start: 20100920
  2. FLOMAX [Suspect]
     Indication: POLLAKIURIA
     Dates: start: 201202
  3. ACETAMINOPHEN [Concomitant]
     Indication: CARDIAC DISORDER
  4. JAMP-ASA [Concomitant]
     Indication: CARDIAC DISORDER
  5. CALCIUM +VIT D [Concomitant]
     Indication: PRODUCT USED FOR UNKNOWN INDICATION
     Dosage: Daily dose: 1000mg/800IU Unit dose: 500mg/400IU
  6. DOCUSATE SODIUM [Concomitant]
     Indication: GASTROINTESTINAL DISORDER
  7. VITAMIN B1 [Concomitant]
     Indication: PRODUCT USED FOR UNKNOWN INDICATION
  8. NAPROXEN [Concomitant]
     Indication: MUSCULOSKELETAL PAIN
  9. PANTOPRAZOLE [Concomitant]
     Indication: PRODUCT USED FOR UNKNOWN INDICATION
  10. PLAVIX [Concomitant]
     Indication: CEREBROVASCULAR ACCIDENT
  11. PMS SENNOSIDE [Concomitant]
     Indication: GASTROINTESTINAL DISORDER
     Dosage: at bedtime
  12. TIAZAC XC [Concomitant]
     Indication: PRODUCT USED FOR UNKNOWN INDICATION
  13. RATIO-FENTANYL [Concomitant]
     Indication: CARDIAC DISORDER
     Dosage: 1 patch every 3 days
  14. CENTRUM REG [Concomitant]
     Indication: PRODUCT USED FOR UNKNOWN INDICATION
  15. RATIO-SALBUTAMOL [Concomitant]
     Indication: RESPIRATORY DISORDER
     Dosage: 12.5 mg / 2.5 ml QID
  16. APO-SALVENT CFC [Concomitant]
     Indication: RESPIRATORY DISORDER
  17. SEROQUEL [Concomitant]
     Indication: PRODUCT USED FOR UNKNOWN INDICATION
  18. PRO-QUETIAPINE [Concomitant]
     Indication: SLEEP DISORDER
     Dosage: 1-2 tablets as required over night

REACTIONS (13)
  - Cerebrovascular accident [Unknown]
  - Agitation [Recovered/Resolved]
  - Anxiety [Recovered/Resolved]
  - Insomnia [Recovered/Resolved]
  - Cerebrovascular accident [Unknown]
  - Cerebrovascular accident [Unknown]
  - Cerebrovascular accident [Unknown]
  - Cerebrovascular accident [Unknown]
  - Cerebrovascular accident [Unknown]
  - Asthenia [Recovering/Resolving]
  - Abnormal behaviour [Unknown]
  - Pollakiuria [Not Recovered/Not Resolved]
  - Lung carcinoma cell type unspecified recurrent [Not Recovered/Not Resolved]
